FAERS Safety Report 9415317 (Version 2)
Quarter: 2013Q3

REPORT INFORMATION
  Report Type: Spontaneous
  Country: US (occurrence: US)
  Receive Date: 20130723
  Receipt Date: 20130822
  Transmission Date: 20140515
  Serious: Yes (Other)
  Sender: FDA-Public Use
  Company Number: US-FRI-1000046800

PATIENT
  Age: 58 Year
  Sex: Male
  Weight: 137.89 kg

DRUGS (4)
  1. VIIBRYD [Suspect]
     Indication: DEPRESSION
     Dosage: 10 MG
     Route: 048
     Dates: start: 20130604, end: 20130610
  2. VIIBRYD [Suspect]
     Indication: DEPRESSION
     Dosage: 20 MG
     Route: 048
     Dates: start: 20130611, end: 20130620
  3. COUMADIN SODIUM [Concomitant]
     Indication: ATRIAL FIBRILLATION
     Dosage: 6 MG
     Dates: start: 201105
  4. ASPIRIN [Concomitant]
     Dosage: 81 MG
     Dates: start: 201105

REACTIONS (1)
  - International normalised ratio increased [Recovered/Resolved]
